FAERS Safety Report 5778575-X (Version None)
Quarter: 2008Q2

REPORT INFORMATION
  Report Type: 
  Country: None (occurrence: None)
  Receive Date: 20080618
  Receipt Date: 20080618
  Transmission Date: 20081010
  Serious: Yes (Life-Threatening, Hospitalization)
  Sender: FDA-Public Use
  Company Number: None

PATIENT
  Sex: Female
  Weight: 61.2356 kg

DRUGS (2)
  1. ACCUTANE [Suspect]
     Indication: ACNE
     Dates: start: 20020601, end: 20021201
  2. ACCUTANE [Suspect]
     Indication: ACNE
     Dates: start: 20031201, end: 20040601

REACTIONS (7)
  - ANOREXIA [None]
  - DRY SKIN [None]
  - FATIGUE [None]
  - LIP DRY [None]
  - NIGHT BLINDNESS [None]
  - TYPE 1 DIABETES MELLITUS [None]
  - WEIGHT DECREASED [None]
